FAERS Safety Report 21629444 (Version 1)
Quarter: 2022Q4

REPORT INFORMATION
  Report Type: Spontaneous
  Country: US (occurrence: None)
  Receive Date: 20221122
  Receipt Date: 20221122
  Transmission Date: 20230113
  Serious: No
  Sender: FDA-Public Use
  Company Number: None

PATIENT
  Age: 74 Year
  Sex: Male
  Weight: 94.5 kg

DRUGS (7)
  1. TRELEGY ELLIPTA [Suspect]
     Active Substance: FLUTICASONE FUROATE\UMECLIDINIUM BROMIDE\VILANTEROL TRIFENATATE
     Indication: Chronic obstructive pulmonary disease
     Dosage: OTHER STRENGTH : MCG;?OTHER QUANTITY : 1 PUFF(S);?FREQUENCY : DAILY;?
     Route: 055
  2. XARELTO [Concomitant]
     Active Substance: RIVAROXABAN
  3. CARVEDILOL [Concomitant]
     Active Substance: CARVEDILOL
  4. LISINOPRIL [Concomitant]
     Active Substance: LISINOPRIL
  5. DIGOXIN [Concomitant]
     Active Substance: DIGOXIN
  6. ATORVASTATIN [Concomitant]
     Active Substance: ATORVASTATIN
  7. PREDNISONE [Concomitant]
     Active Substance: PREDNISONE

REACTIONS (1)
  - Back pain [None]

NARRATIVE: CASE EVENT DATE: 20221015
